FAERS Safety Report 24247920 (Version 1)
Quarter: 2024Q3

REPORT INFORMATION
  Report Type: Spontaneous
  Country: FR (occurrence: FR)
  Receive Date: 20240826
  Receipt Date: 20240826
  Transmission Date: 20241016
  Serious: Yes (Other)
  Sender: INFORLIFE
  Company Number: FR-INFO-20240255

PATIENT
  Age: 67 Year
  Sex: Male

DRUGS (11)
  1. ACETAMINOPHEN [Suspect]
     Active Substance: ACETAMINOPHEN
     Indication: Analgesic therapy
     Dosage: 1?2 G DAILY FOR 6 MONTHS ()
  2. IMIPENEM [Concomitant]
     Active Substance: IMIPENEM
     Indication: Osteoarthritis
  3. FLUCONAZOLE [Concomitant]
     Active Substance: FLUCONAZOLE
     Indication: Osteoarthritis
  4. INSULIN NOS [Concomitant]
     Active Substance: INSULIN NOS
     Indication: Type 1 diabetes mellitus
  5. ODEFSEY [Concomitant]
     Active Substance: EMTRICITABINE\RILPIVIRINE HYDROCHLORIDE\TENOFOVIR ALAFENAMIDE FUMARATE
     Indication: HIV infection
     Dosage: 200/25/25 ONCE DAILY ()
  6. ARUNAVIR [Concomitant]
     Indication: HIV infection
  7. RITONAVIR [Concomitant]
     Active Substance: RITONAVIR
     Indication: HIV infection
  8. TIVICAY [Concomitant]
     Active Substance: DOLUTEGRAVIR SODIUM
     Indication: HIV infection
  9. ASPIRIN [Concomitant]
     Active Substance: ASPIRIN
  10. MORPHINE SULFATE [Concomitant]
     Active Substance: MORPHINE SULFATE
     Indication: Analgesic therapy
  11. NEFOPAM [Concomitant]
     Active Substance: NEFOPAM
     Indication: Analgesic therapy
     Dosage: AS NECESSARY

REACTIONS (1)
  - Pyroglutamic acidosis [Unknown]
